FAERS Safety Report 17610579 (Version 1)
Quarter: 2020Q2

REPORT INFORMATION
  Report Type: Spontaneous
  Country: IT (occurrence: IT)
  Receive Date: 20200401
  Receipt Date: 20200401
  Transmission Date: 20200713
  Serious: Yes (Death, Hospitalization)
  Sender: FDA-Public Use
  Company Number: IT-STRIDES ARCOLAB LIMITED-2020SP004141

PATIENT
  Age: 52 Year
  Sex: Female

DRUGS (6)
  1. PREDNISOLONE. [Suspect]
     Active Substance: PREDNISOLONE
     Indication: LIVER TRANSPLANT
  2. CYCLOSPORINE. [Suspect]
     Active Substance: CYCLOSPORINE
     Indication: LIVER TRANSPLANT
  3. MYCOPHENOLATE MOFETIL. [Suspect]
     Active Substance: MYCOPHENOLATE MOFETIL
     Indication: IMMUNOSUPPRESSANT DRUG THERAPY
     Dosage: UNK
     Route: 065
  4. CYCLOSPORINE. [Suspect]
     Active Substance: CYCLOSPORINE
     Indication: IMMUNOSUPPRESSANT DRUG THERAPY
     Dosage: 8 MG/KG/DAY
     Route: 065
  5. MYCOPHENOLATE MOFETIL. [Suspect]
     Active Substance: MYCOPHENOLATE MOFETIL
     Indication: LIVER TRANSPLANT
  6. PREDNISOLONE. [Suspect]
     Active Substance: PREDNISOLONE
     Indication: IMMUNOSUPPRESSANT DRUG THERAPY
     Dosage: UNK
     Route: 065

REACTIONS (15)
  - Mutism [Unknown]
  - Psychomotor hyperactivity [Unknown]
  - Cytotoxic oedema [Unknown]
  - Death [Fatal]
  - Dyskinesia [Unknown]
  - White matter lesion [Unknown]
  - Confusional state [Unknown]
  - Myoclonus [Unknown]
  - Oculogyric crisis [Unknown]
  - Encephalopathy [Unknown]
  - Unresponsive to stimuli [Unknown]
  - Locked-in syndrome [Unknown]
  - Gaze palsy [Unknown]
  - Akinesia [Unknown]
  - Altered state of consciousness [Not Recovered/Not Resolved]
